FAERS Safety Report 19609029 (Version 2)
Quarter: 2025Q4

REPORT INFORMATION
  Report Type: Report from Study
  Country: US (occurrence: US)
  Receive Date: 20210726
  Receipt Date: 20251027
  Transmission Date: 20260118
  Serious: Yes (Other)
  Sender: ASTELLAS
  Company Number: US-ASTELLAS-2021US014481

PATIENT
  Age: 74 Year
  Sex: Male
  Weight: 86 kg

DRUGS (3)
  1. XTANDI [Suspect]
     Active Substance: ENZALUTAMIDE
     Indication: Prostate cancer
     Route: 048
     Dates: start: 20201129, end: 202105
  2. XTANDI [Suspect]
     Active Substance: ENZALUTAMIDE
     Dosage: (TWO 40 MG TABLETS)
     Route: 048
     Dates: start: 202105, end: 202106
  3. XTANDI [Suspect]
     Active Substance: ENZALUTAMIDE
     Indication: Prostate cancer
     Dosage: 2 X 80MG
     Route: 048

REACTIONS (7)
  - Weight increased [Unknown]
  - Musculoskeletal stiffness [Recovering/Resolving]
  - Fatigue [Not Recovered/Not Resolved]
  - Hypoacusis [Not Recovered/Not Resolved]
  - Prostatic specific antigen increased [Not Recovered/Not Resolved]
  - Lethargy [Recovering/Resolving]
  - Drug ineffective [Unknown]

NARRATIVE: CASE EVENT DATE: 20200201
